FAERS Safety Report 5300417-7 (Version None)
Quarter: 2007Q2

REPORT INFORMATION
  Report Type: 
  Country: None (occurrence: None)
  Receive Date: 20070418
  Receipt Date: 20070405
  Transmission Date: 20071010
  Serious: Yes (Other)
  Sender: FDA-Public Use
  Company Number: PHNU2007DE01037

PATIENT
  Sex: Female

DRUGS (2)
  1. FEMARA [Suspect]
     Indication: BREAST CANCER
     Dosage: 2.5 MG, QD
     Route: 048
     Dates: start: 20061229
  2. CHEMOTHERAPEUTICS,OTHER [Suspect]
     Dosage: 6 CYCLES
     Route: 042
     Dates: end: 20061123

REACTIONS (3)
  - INFUSION SITE DISCOLOURATION [None]
  - PHLEBITIS [None]
  - SKIN DISORDER [None]
